FAERS Safety Report 7963168-6 (Version None)
Quarter: 2011Q4

REPORT INFORMATION
  Report Type: 
  Country: None (occurrence: None)
  Receive Date: 20111207
  Receipt Date: 20111128
  Transmission Date: 20120403
  Serious: Yes (Life-Threatening, Hospitalization)
  Sender: FDA-Public Use
  Company Number: JP-BRISTOL-MYERS SQUIBB COMPANY-13900899

PATIENT
  Age: 60 Year
  Sex: Male

DRUGS (9)
  1. LOSARTAN POTASSIUM [Concomitant]
     Route: 048
     Dates: start: 20021101
  2. VITAMEDIN [Concomitant]
     Dosage: 1DF: 3CAPS.
     Route: 048
     Dates: start: 20060301, end: 20070425
  3. BARACLUDE [Suspect]
     Indication: HEPATITIS B
     Route: 048
     Dates: start: 20070425, end: 20070731
  4. LENDORMIN [Concomitant]
     Route: 048
     Dates: start: 20021101
  5. AMLODIPINE [Concomitant]
     Dosage: 1MAY08.
     Route: 048
     Dates: start: 20080501
  6. INTRON A [Concomitant]
     Route: 058
     Dates: start: 19910101
  7. SELBEX [Concomitant]
     Dosage: 1DF: 3CAPS.
     Route: 048
     Dates: start: 20021101, end: 20080426
  8. URSO 250 [Concomitant]
     Route: 048
     Dates: start: 20070326
  9. FERON [Concomitant]
     Route: 041
     Dates: start: 19911201

REACTIONS (1)
  - HEPATIC NEOPLASM MALIGNANT [None]
